FAERS Safety Report 19432765 (Version 1)
Quarter: 2021Q2

REPORT INFORMATION
  Report Type: Spontaneous
  Country: US (occurrence: US)
  Receive Date: 20210618
  Receipt Date: 20210618
  Transmission Date: 20210717
  Serious: No
  Sender: FDA-Public Use
  Company Number: US-SA-2020SA362167

PATIENT
  Sex: Female

DRUGS (1)
  1. DUPIXENT [Suspect]
     Active Substance: DUPILUMAB
     Dosage: 300 MG

REACTIONS (6)
  - Panic attack [Unknown]
  - Knee arthroplasty [Unknown]
  - Rash [Unknown]
  - Intentional dose omission [Unknown]
  - Product storage error [Unknown]
  - Pruritus [Unknown]

NARRATIVE: CASE EVENT DATE: 20210513
